FAERS Safety Report 5217882-6 (Version None)
Quarter: 2007Q1

REPORT INFORMATION
  Report Type: 
  Country: None (occurrence: None)
  Receive Date: 20061130
  Receipt Date: 20060731
  Transmission Date: 20070707
  Serious: Yes (Hospitalization, Other)
  Sender: FDA-Public Use
  Company Number: US200608000502

PATIENT
  Age: 34 Year
  Sex: Female
  Weight: 112.5 kg

DRUGS (6)
  1. ZYPREXA [Suspect]
     Dosage: 30 MG, 15 MG, 12.5 MG, 10 MG
     Dates: start: 19990601, end: 19991101
  2. ZYPREXA [Suspect]
     Dosage: 30 MG, 15 MG, 12.5 MG, 10 MG
     Dates: start: 19991101, end: 20010326
  3. ZYPREXA [Suspect]
     Dosage: 30 MG, 15 MG, 12.5 MG, 10 MG
     Dates: start: 20010326, end: 20021219
  4. ZYPREXA [Suspect]
     Dosage: 30 MG, 15 MG, 12.5 MG, 10 MG
     Dates: start: 20021219, end: 20030205
  5. ABILIFY [Concomitant]
  6. SERZONE [Concomitant]

REACTIONS (4)
  - BLOOD GLUCOSE INCREASED [None]
  - DIABETES MELLITUS [None]
  - PANCREATITIS [None]
  - PRESCRIBED OVERDOSE [None]
